FAERS Safety Report 9584608 (Version 1)
Quarter: 2013Q4

REPORT INFORMATION
  Report Type: Spontaneous
  Country: US (occurrence: US)
  Receive Date: 20131002
  Receipt Date: 20131002
  Transmission Date: 20140711
  Serious: No
  Sender: FDA-Public Use
  Company Number: US-AMGEN-USASP2013054246

PATIENT
  Age: 50 Year
  Sex: Male
  Weight: 113.38 kg

DRUGS (4)
  1. ENBREL [Suspect]
     Indication: PSORIASIS
     Dosage: 50 MG, QWK
     Route: 058
     Dates: start: 20130116
  2. NEXIUM                             /01479302/ [Concomitant]
     Dosage: UNK
  3. CARVEDILOL [Concomitant]
     Dosage: UNK
  4. WELCHOL [Concomitant]
     Dosage: UNK

REACTIONS (2)
  - Abdominal discomfort [Unknown]
  - Injection site pain [Unknown]
